FAERS Safety Report 8201461-2 (Version None)
Quarter: 2012Q1

REPORT INFORMATION
  Report Type: 
  Country: None (occurrence: None)
  Receive Date: 20120307
  Receipt Date: 20120223
  Transmission Date: 20120608
  Serious: Yes (Other)
  Sender: FDA-Public Use
  Company Number: 2012SP010289

PATIENT
  Age: 30 Year
  Sex: Male

DRUGS (7)
  1. PAROXETINE HYDROCHLORIDE [Suspect]
     Indication: DEPRESSION
     Dosage: ;QD;PO
     Route: 048
     Dates: start: 20120101, end: 20120110
  2. TESTOSTERONE [Concomitant]
  3. DESLORATADINE [Suspect]
     Indication: PRODUCT USED FOR UNKNOWN INDICATION
     Dosage: 5 MG;QD;PO
     Route: 048
  4. PRAZEPAM [Suspect]
     Indication: DEPRESSION
     Dosage: ;TID;PO    ;PO
     Route: 048
     Dates: start: 20120114
  5. PRAZEPAM [Suspect]
     Indication: DEPRESSION
     Dosage: ;TID;PO    ;PO
     Route: 048
     Dates: start: 20120101, end: 20120110
  6. TRIMEPRAZINE TARTRATE [Suspect]
     Indication: DEPRESSION
     Dosage: 20 GTT;QD;PO
     Route: 048
     Dates: start: 20120101, end: 20120110
  7. NASONEX [Suspect]
     Indication: PRODUCT USED FOR UNKNOWN INDICATION
     Dosage: 5 MCG; NAS
     Route: 045

REACTIONS (1)
  - HICCUPS [None]
